FAERS Safety Report 13260431 (Version 2)
Quarter: 2017Q1

REPORT INFORMATION
  Report Type: Spontaneous
  Country: IT (occurrence: IT)
  Receive Date: 20170222
  Receipt Date: 20170314
  Transmission Date: 20170428
  Serious: Yes (Hospitalization)
  Sender: FDA-Public Use
  Company Number: IT-SA-2017SA026501

PATIENT
  Age: 22 Year
  Sex: Female
  Weight: 162 kg

DRUGS (7)
  1. ACYCLOVIR. [Concomitant]
     Active Substance: ACYCLOVIR
     Route: 042
     Dates: start: 201702, end: 201702
  2. SOLU-MEDROL [Concomitant]
     Active Substance: METHYLPREDNISOLONE SODIUM SUCCINATE
     Indication: PREMEDICATION
     Route: 042
     Dates: start: 20170201, end: 20170207
  3. LEMTRADA [Suspect]
     Active Substance: ALEMTUZUMAB
     Indication: MULTIPLE SCLEROSIS
     Route: 041
     Dates: start: 20170201, end: 20170207
  4. TRIMETON [Concomitant]
     Active Substance: CHLORPHENIRAMINE MALEATE
     Indication: PREMEDICATION
     Dates: start: 20170201, end: 20170207
  5. TACHIPIRINA [Concomitant]
     Active Substance: ACETAMINOPHEN
     Indication: PREMEDICATION
     Dates: start: 20170201, end: 20170207
  6. ROCEFIN [Concomitant]
     Active Substance: CEFTRIAXONE SODIUM
     Dates: start: 201702, end: 201702
  7. RANITIDINE. [Concomitant]
     Active Substance: RANITIDINE
     Indication: PREMEDICATION
     Route: 048
     Dates: start: 20170201, end: 20170207

REACTIONS (8)
  - Malaise [Recovered/Resolved]
  - Listeria sepsis [Not Recovered/Not Resolved]
  - Leukocytosis [Recovered/Resolved]
  - Vomiting [Recovered/Resolved]
  - Headache [Not Recovered/Not Resolved]
  - Pyrexia [Recovered/Resolved]
  - Listeria test positive [Unknown]
  - C-reactive protein [Recovered/Resolved]

NARRATIVE: CASE EVENT DATE: 2017
